FAERS Safety Report 4528973-7 (Version None)
Quarter: 2004Q4

REPORT INFORMATION
  Report Type: 
  Country: None (occurrence: None)
  Receive Date: 20041215
  Receipt Date: 20041215
  Transmission Date: 20050328
  Serious: Yes (Life-Threatening, Hospitalization)
  Sender: FDA-Public Use
  Company Number: None

PATIENT
  Age: 67 Year
  Sex: Female
  Weight: 83.9154 kg

DRUGS (1)
  1. BEXTRA [Suspect]
     Indication: BACK DISORDER
     Dosage: 1 DAILY

REACTIONS (4)
  - CHEST DISCOMFORT [None]
  - CHEST PAIN [None]
  - MOVEMENT DISORDER [None]
  - MYOCARDIAL INFARCTION [None]
